FAERS Safety Report 8417753 (Version 8)
Quarter: 2012Q4

REPORT INFORMATION
  Report Type: 
  Country: BR (occurrence: BR)
  Receive Date: 20120221
  Receipt Date: 20120926
  Transmission Date: 20130627
  Serious: Yes (Death, Hospitalization, Other)
  Sender: FDA-Public Use
  Company Number: BR-PFIZER INC-2012009058

PATIENT
  Age: 53 Year
  Sex: Female
  Weight: 72 kg

DRUGS (7)
  1. SUTENT [Suspect]
     Indication: PANCREATIC NEUROENDOCRINE TUMOUR
     Dosage: 50 mg, alternate day
     Route: 048
     Dates: start: 20111223
  2. SUTENT [Suspect]
     Indication: PANCREATIC CARCINOMA
     Dosage: 37.5 mg, 1x/day (second cycle, continue use)
     Route: 048
     Dates: start: 20120104, end: 201202
  3. SUTENT [Suspect]
     Dosage: 50 mg, UNK
     Route: 048
  4. SUTENT [Suspect]
     Dosage: 50 mg, 1x/day
     Route: 048
  5. OMEPRAZOL [Concomitant]
     Dosage: 20 mg, 1x/day
  6. PROPANOLOL [Concomitant]
     Dosage: 10 mg, 1x/day
  7. FUROSEMIDE [Concomitant]
     Dosage: UNK

REACTIONS (21)
  - Death [Fatal]
  - Ascites [Unknown]
  - Fatigue [Unknown]
  - Swelling [Unknown]
  - Asthenia [Unknown]
  - Vaginal haemorrhage [Unknown]
  - Blood potassium decreased [Unknown]
  - Platelet count decreased [Unknown]
  - Blood glucose increased [Recovering/Resolving]
  - Weight decreased [Unknown]
  - Mouth injury [Not Recovered/Not Resolved]
  - Abdominal pain [Unknown]
  - Diarrhoea [Not Recovered/Not Resolved]
  - Yellow skin [Not Recovered/Not Resolved]
  - Ageusia [Not Recovered/Not Resolved]
  - Dry throat [Not Recovered/Not Resolved]
  - Speech disorder [Not Recovered/Not Resolved]
  - Malaise [Not Recovered/Not Resolved]
  - Somnolence [Not Recovered/Not Resolved]
  - Hepatic pain [Not Recovered/Not Resolved]
  - Blood pressure abnormal [Recovering/Resolving]
